FAERS Safety Report 4841788-5 (Version None)
Quarter: 2005Q4

REPORT INFORMATION
  Report Type: 
  Country: None (occurrence: None)
  Receive Date: 20051130
  Receipt Date: 20001201
  Transmission Date: 20060501
  Serious: Yes (Death, Hospitalization)
  Sender: FDA-Public Use
  Company Number: GB-ROCHE-250267

PATIENT
  Age: 42 Year
  Sex: Male
  Weight: 66.9 kg

DRUGS (11)
  1. RIBAVIRIN [Suspect]
     Dosage: WITH FOOD.
     Route: 048
     Dates: start: 20000906, end: 20001130
  2. RIBAVIRIN [Suspect]
     Dosage: WITH FOOD.
     Route: 048
     Dates: start: 20001201
  3. RIBAVIRIN [Suspect]
     Dosage: WITH FOOD.
     Route: 048
     Dates: start: 20010226
  4. RIBAVIRIN [Suspect]
     Dosage: WITH FOOD.
     Route: 048
     Dates: end: 20010323
  5. INTERFERON ALFA-2A [Suspect]
     Route: 058
     Dates: start: 20000906, end: 20010323
  6. PENICILLIN V [Concomitant]
     Dates: start: 19950615
  7. STAVUDINE [Concomitant]
     Dates: start: 20010105, end: 20010403
  8. DIDANOSINE [Concomitant]
     Dates: start: 20010105, end: 20010403
  9. EFAVIRENZ [Concomitant]
     Dates: start: 20010105, end: 20010403
  10. SPIRONOLACTONE [Concomitant]
     Dates: start: 20001216
  11. ZOPICLONE [Concomitant]

REACTIONS (8)
  - ANAEMIA [None]
  - ASCITES [None]
  - HAEMORRHAGE SUBCUTANEOUS [None]
  - HEPATIC FAILURE [None]
  - JOINT SWELLING [None]
  - PERITONITIS [None]
  - PERITONITIS BACTERIAL [None]
  - PLATELET COUNT DECREASED [None]
